FAERS Safety Report 10402998 (Version 2)
Quarter: 2014Q3

REPORT INFORMATION
  Report Type: Spontaneous
  Country: JP (occurrence: JP)
  Receive Date: 20140822
  Receipt Date: 20140924
  Transmission Date: 20150326
  Serious: Yes (Other)
  Sender: FDA-Public Use
  Company Number: PHHY2014JP102615

PATIENT
  Weight: 1 kg

DRUGS (7)
  1. AZELNIDIPINE [Suspect]
     Active Substance: AZELNIDIPINE
     Route: 064
  2. HYDRALAZINE [Suspect]
     Active Substance: HYDRALAZINE HYDROCHLORIDE
     Route: 064
  3. INSULIN LISPRO [Suspect]
     Active Substance: INSULIN LISPRO
     Route: 064
  4. NICARDIPINE [Suspect]
     Active Substance: NICARDIPINE
     Route: 064
  5. METHYLDOPA. [Suspect]
     Active Substance: METHYLDOPA
     Route: 064
  6. APRESOLIN [Suspect]
     Active Substance: HYDRALAZINE HYDROCHLORIDE
     Route: 064
  7. INSULIN [Suspect]
     Active Substance: INSULIN NOS
     Route: 064

REACTIONS (4)
  - Low birth weight baby [Unknown]
  - Premature baby [Unknown]
  - Apgar score low [Unknown]
  - Foetal exposure during pregnancy [Unknown]
